FAERS Safety Report 14524849 (Version 2)
Quarter: 2018Q1

REPORT INFORMATION
  Report Type: Spontaneous
  Country: JP (occurrence: JP)
  Receive Date: 20180213
  Receipt Date: 20180322
  Transmission Date: 20180509
  Serious: Yes (Other)
  Sender: FDA-Public Use
  Company Number: JP-ROCHE-2073950

PATIENT
  Age: 8 Year

DRUGS (1)
  1. TAMIFLU [Suspect]
     Active Substance: OSELTAMIVIR PHOSPHATE
     Indication: INFLUENZA
     Dosage: DOSAGE IS UNCERTAIN.
     Route: 048
     Dates: start: 201801, end: 201801

REACTIONS (1)
  - Abnormal behaviour [Recovered/Resolved]

NARRATIVE: CASE EVENT DATE: 201801
